FAERS Safety Report 25598819 (Version 1)
Quarter: 2025Q3

REPORT INFORMATION
  Report Type: Report from Study
  Country: CA (occurrence: CA)
  Receive Date: 20250724
  Receipt Date: 20250724
  Transmission Date: 20251020
  Serious: Yes (Hospitalization)
  Sender: ABBVIE
  Company Number: CA-ABBVIE-6382745

PATIENT
  Sex: Male

DRUGS (1)
  1. RINVOQ [Suspect]
     Active Substance: UPADACITINIB
     Indication: Crohn^s disease
     Dosage: FORM STRENGTH 30MG
     Route: 048

REACTIONS (6)
  - Diarrhoea [Unknown]
  - Abdominal pain [Unknown]
  - Clostridium test positive [Unknown]
  - Terminal ileitis [Unknown]
  - Gastrointestinal wall thickening [Unknown]
  - Stenosis [Unknown]
